FAERS Safety Report 10179407 (Version 3)
Quarter: 2014Q4

REPORT INFORMATION
  Report Type: Spontaneous
  Country: GB (occurrence: GB)
  Receive Date: 20140519
  Receipt Date: 20141212
  Transmission Date: 20150528
  Serious: Yes (Hospitalization)
  Sender: FDA-Public Use
  Company Number: GB-ABBVIE-14P-167-1238189-00

PATIENT
  Age: 44 Year
  Sex: Female
  Weight: 116 kg

DRUGS (2)
  1. PROSTAP SR DCS [Suspect]
     Active Substance: LEUPROLIDE ACETATE
     Indication: ENDOMETRIOSIS
     Route: 030
     Dates: start: 20140411, end: 20140610
  2. PROSTAP SR DCS [Suspect]
     Active Substance: LEUPROLIDE ACETATE
     Indication: MENORRHAGIA

REACTIONS (5)
  - Abdominal pain [Recovered/Resolved]
  - Menstrual disorder [Recovered/Resolved]
  - Dysmenorrhoea [Recovered/Resolved]
  - Medication error [Unknown]
  - Menorrhagia [Recovered/Resolved]

NARRATIVE: CASE EVENT DATE: 20140419
